FAERS Safety Report 23068063 (Version 1)
Quarter: 2023Q4

REPORT INFORMATION
  Report Type: Spontaneous
  Country: US (occurrence: US)
  Receive Date: 20231016
  Receipt Date: 20231016
  Transmission Date: 20240110
  Serious: No
  Sender: FDA-Public Use
  Company Number: US-Ipsen Biopharmaceuticals, Inc.-2023-23724

PATIENT
  Age: 64 Year
  Sex: Female

DRUGS (7)
  1. DYSPORT [Suspect]
     Active Substance: ABOBOTULINUMTOXINA
     Indication: Skin wrinkling
     Route: 065
     Dates: start: 20230928, end: 20230928
  2. DYSPORT [Suspect]
     Active Substance: ABOBOTULINUMTOXINA
     Indication: Skin wrinkling
  3. UNSPECIFIED INGREDIENT [Concomitant]
     Active Substance: UNSPECIFIED INGREDIENT
     Indication: Seasonal allergy
  4. ZINC [Concomitant]
     Active Substance: ZINC
     Indication: Vitamin supplementation
  5. HERBALS [Concomitant]
     Active Substance: HERBALS
     Indication: Vitamin supplementation
  6. VITAMINS [Concomitant]
     Active Substance: VITAMINS
     Indication: Vitamin supplementation
  7. JUVEDERM [Concomitant]
     Active Substance: HYALURONIC ACID
     Indication: Lip cosmetic procedure

REACTIONS (1)
  - Drug ineffective [Unknown]
